FAERS Safety Report 7773154-7 (Version None)
Quarter: 2011Q3

REPORT INFORMATION
  Report Type: 
  Country: None (occurrence: None)
  Receive Date: 20110922
  Receipt Date: 20110601
  Transmission Date: 20111222
  Serious: Yes (Other)
  Sender: FDA-Public Use
  Company Number: US-ASTRAZENECA-2011SE24948

PATIENT
  Age: 48 Year
  Sex: Male
  Weight: 88.9 kg

DRUGS (7)
  1. HALDOL [Concomitant]
     Indication: PSYCHOTIC DISORDER
     Route: 030
     Dates: start: 20100713
  2. SEROQUEL [Suspect]
     Indication: BIPOLAR I DISORDER
     Route: 048
     Dates: start: 20110101, end: 20110419
  3. CLONIDINE [Concomitant]
     Route: 048
     Dates: start: 20100525
  4. CELEXA [Concomitant]
     Route: 048
     Dates: start: 20110420
  5. SEROQUEL [Suspect]
     Indication: SCHIZOPHRENIA
     Route: 048
     Dates: start: 20110101, end: 20110419
  6. ZESTRIL [Concomitant]
     Indication: CONVULSION
     Route: 048
     Dates: start: 20110428, end: 20110428
  7. ATIVAN [Concomitant]
     Indication: CONVULSION
     Route: 042
     Dates: start: 20110428, end: 20110428

REACTIONS (2)
  - CONVULSION [None]
  - DRUG DOSE OMISSION [None]
